FAERS Safety Report 25014661 (Version 1)
Quarter: 2025Q1

REPORT INFORMATION
  Report Type: Spontaneous
  Country: US (occurrence: US)
  Receive Date: 20250226
  Receipt Date: 20250226
  Transmission Date: 20250409
  Serious: No
  Sender: PFIZER
  Company Number: US-PFIZER INC-2019430326

PATIENT
  Age: 83 Year
  Sex: Female

DRUGS (3)
  1. TIKOSYN [Suspect]
     Active Substance: DOFETILIDE
     Indication: Urinary tract infection
     Dosage: 250 UG, 2X/DAY (TAKE ONE CAPSULE TWICE A DAY)
     Route: 048
  2. TIKOSYN [Suspect]
     Active Substance: DOFETILIDE
     Indication: Cardiac failure congestive
  3. TIKOSYN [Suspect]
     Active Substance: DOFETILIDE
     Indication: Cardiac failure

REACTIONS (7)
  - Off label use [Unknown]
  - Asthma [Unknown]
  - Arthritis [Unknown]
  - Walking aid user [Unknown]
  - Musculoskeletal discomfort [Unknown]
  - Bone disorder [Unknown]
  - Spinal disorder [Unknown]
